FAERS Safety Report 9927480 (Version 1)
Quarter: 2014Q1

REPORT INFORMATION
  Report Type: Spontaneous
  Country: FR (occurrence: FR)
  Receive Date: 20140227
  Receipt Date: 20140227
  Transmission Date: 20141002
  Serious: Yes (Hospitalization)
  Sender: FDA-Public Use
  Company Number: FR-AMGEN-FRASP2014013748

PATIENT
  Age: 52 Year
  Sex: Female

DRUGS (3)
  1. ENBREL [Suspect]
     Indication: ANKYLOSING SPONDYLITIS
     Dosage: 25 MG, 2X/WEEK
     Route: 058
     Dates: start: 2006
  2. ENBREL [Suspect]
     Dosage: 50 MG, WEEKLY
     Route: 065
  3. METOJECT [Suspect]
     Indication: ANKYLOSING SPONDYLITIS
     Dosage: 15 MG, WEEKLY
     Route: 058

REACTIONS (2)
  - Angiotensin converting enzyme increased [Unknown]
  - Pyrexia [Not Recovered/Not Resolved]
